FAERS Safety Report 7052567-5 (Version None)
Quarter: 2010Q4

REPORT INFORMATION
  Report Type: 
  Country: None (occurrence: None)
  Receive Date: 20101019
  Receipt Date: 20101006
  Transmission Date: 20110411
  Serious: Yes (Other)
  Sender: FDA-Public Use
  Company Number: US-PFIZER INC-2010131928

PATIENT
  Age: 70 Year
  Sex: Female
  Weight: 74.014 kg

DRUGS (6)
  1. XALATAN [Suspect]
     Indication: INTRAOCULAR PRESSURE INCREASED
     Dosage: 1 GTT, 1X/DAY
     Route: 047
     Dates: start: 20100914
  2. HERBESSER [Suspect]
     Indication: HYPERTENSION
  3. OMEPRAZON [Suspect]
     Indication: GASTROOESOPHAGEAL REFLUX DISEASE
     Route: 048
  4. AMIODARONE HYDROCHLORIDE [Concomitant]
     Indication: HEART RATE IRREGULAR
  5. AMIODARONE HYDROCHLORIDE [Concomitant]
     Indication: HEART RATE INCREASED
  6. LEVOTHYROXINE [Concomitant]
     Indication: THYROID FUNCTION TEST ABNORMAL

REACTIONS (2)
  - CHEST PAIN [None]
  - DYSPEPSIA [None]
